FAERS Safety Report 9197763 (Version 2)
Quarter: 2013Q2

REPORT INFORMATION
  Report Type: Spontaneous
  Country: US (occurrence: US)
  Receive Date: 20130328
  Receipt Date: 20130513
  Transmission Date: 20140414
  Serious: No
  Sender: FDA-Public Use
  Company Number: US-ASTRAZENECA-2013SE18357

PATIENT
  Age: 50 Year
  Sex: Female
  Weight: 97.5 kg

DRUGS (7)
  1. NEXIUM [Suspect]
     Indication: GASTROOESOPHAGEAL REFLUX DISEASE
     Route: 048
     Dates: start: 2011, end: 201207
  2. PRILOSEC [Suspect]
     Indication: GASTROOESOPHAGEAL REFLUX DISEASE
     Dosage: GENERIC
     Route: 048
     Dates: start: 201206
  3. PRILOSEC [Suspect]
     Indication: GASTROOESOPHAGEAL REFLUX DISEASE
     Route: 048
     Dates: start: 201207, end: 201207
  4. PRILOSEC [Suspect]
     Indication: GASTROOESOPHAGEAL REFLUX DISEASE
     Route: 048
     Dates: start: 201302
  5. PRAVISTATIN SODIUM [Concomitant]
     Indication: BLOOD CHOLESTEROL INCREASED
  6. FAMATODINE [Concomitant]
     Indication: DYSPEPSIA
  7. HYDROCHOLIZIDE [Concomitant]
     Indication: HYPERTENSION
     Dates: start: 201212

REACTIONS (4)
  - Hypertension [Recovered/Resolved]
  - Blood cholesterol increased [Recovered/Resolved]
  - Intentional drug misuse [Unknown]
  - Drug ineffective [Unknown]
